FAERS Safety Report 15881466 (Version 3)
Quarter: 2019Q1

REPORT INFORMATION
  Report Type: Spontaneous
  Country: FR (occurrence: FR)
  Receive Date: 20190128
  Receipt Date: 20190214
  Transmission Date: 20190417
  Serious: Yes (Other)
  Sender: FDA-Public Use
  Company Number: PHHY2019FR018617

PATIENT
  Age: 53 Year
  Sex: Male

DRUGS (1)
  1. ZARZIO [Suspect]
     Active Substance: FILGRASTIM
     Indication: PRODUCT USED FOR UNKNOWN INDICATION
     Dosage: 30 OT, UNK
     Route: 065

REACTIONS (5)
  - Fall [Unknown]
  - Presyncope [Unknown]
  - Myalgia [Unknown]
  - Loss of consciousness [Unknown]
  - Malaise [Unknown]
